FAERS Safety Report 4466707-5 (Version None)
Quarter: 2004Q4

REPORT INFORMATION
  Report Type: 
  Country: None (occurrence: None)
  Receive Date: 20041001
  Receipt Date: 20040921
  Transmission Date: 20050328
  Serious: Yes (Other)
  Sender: FDA-Public Use
  Company Number: USA-2004-0015675

PATIENT
  Age: 77 Year
  Sex: Female

DRUGS (3)
  1. OXYCONTIN [Suspect]
  2. PERCOCET [Suspect]
  3. DILAUDID [Suspect]

REACTIONS (10)
  - AGGRESSION [None]
  - ANAEMIA [None]
  - CARDIAC FAILURE CONGESTIVE [None]
  - DIABETES MELLITUS [None]
  - DIZZINESS [None]
  - INSOMNIA [None]
  - MEDICATION ERROR [None]
  - PATIENT RESTRAINT [None]
  - PNEUMONIA [None]
  - SCRATCH [None]
